FAERS Safety Report 5057200-X (Version None)
Quarter: 2006Q3

REPORT INFORMATION
  Report Type: 
  Country: None (occurrence: None)
  Receive Date: 20060721
  Receipt Date: 20050608
  Transmission Date: 20061208
  Serious: No
  Sender: FDA-Public Use
  Company Number: US-GLAXOSMITHKLINE-A0561827A

PATIENT
  Age: 36 Year
  Sex: Male

DRUGS (5)
  1. AVANDIA [Suspect]
     Dosage: 4MG TWICE PER DAY
     Route: 048
     Dates: start: 20050501
  2. METFORMIN [Concomitant]
  3. LANTUS [Concomitant]
  4. AVANDAMET [Concomitant]
  5. NEURONTIN [Concomitant]

REACTIONS (5)
  - DRUG INEFFECTIVE [None]
  - INFECTED SKIN ULCER [None]
  - NEUROPATHY PERIPHERAL [None]
  - OEDEMA PERIPHERAL [None]
  - PAIN IN EXTREMITY [None]
